FAERS Safety Report 25282018 (Version 1)
Quarter: 2025Q2

REPORT INFORMATION
  Report Type: Spontaneous
  Country: DE (occurrence: DE)
  Receive Date: 20250508
  Receipt Date: 20250508
  Transmission Date: 20250716
  Serious: Yes (Congenital Anomaly)
  Sender: AUROBINDO
  Company Number: DE-EMB-M201813024-1

PATIENT
  Sex: Male
  Weight: 3.29 kg

DRUGS (4)
  1. SERTRALINE [Suspect]
     Active Substance: SERTRALINE HYDROCHLORIDE
     Indication: Depression
     Dosage: 50 MILLIGRAM, ONCE A DAY
     Route: 064
     Dates: start: 201810, end: 201812
  2. SERTRALINE [Suspect]
     Active Substance: SERTRALINE HYDROCHLORIDE
     Dosage: 75 MILLIGRAM, ONCE A DAY
     Route: 064
     Dates: start: 201812, end: 201907
  3. MESALAMINE [Suspect]
     Active Substance: MESALAMINE
     Indication: Colitis ulcerative
     Dosage: 1000 MILLIGRAM, EVERY OTHER DAY
     Route: 062
     Dates: start: 201810, end: 201905
  4. MESALAMINE [Suspect]
     Active Substance: MESALAMINE
     Dosage: 1000 MILLIGRAM, ONCE A DAY
     Route: 062
     Dates: start: 201905, end: 201907

REACTIONS (2)
  - Congenital monorchidism [Not Recovered/Not Resolved]
  - Foetal exposure during pregnancy [Unknown]
